FAERS Safety Report 11163010 (Version 2)
Quarter: 2015Q3

REPORT INFORMATION
  Report Type: Spontaneous
  Country: US (occurrence: US)
  Receive Date: 20150604
  Receipt Date: 20150731
  Transmission Date: 20151125
  Serious: Yes (Hospitalization, Other)
  Sender: FDA-Public Use
  Company Number: US-ASTRAZENECA-2015SE53261

PATIENT
  Age: 38 Year
  Sex: Female
  Weight: 63.5 kg

DRUGS (7)
  1. QUETIAPINE FUMARATE. [Suspect]
     Active Substance: QUETIAPINE FUMARATE
     Indication: BIPOLAR DISORDER
     Dosage: APOTEX, 400 MG, UNKNOWN
     Route: 048
     Dates: start: 2014
  2. QUETIAPINE FUMARATE. [Suspect]
     Active Substance: QUETIAPINE FUMARATE
     Indication: BIPOLAR DISORDER
     Dosage: APOTEX, 400 MG, DAILY
     Route: 048
     Dates: start: 2007
  3. QUETIAPINE FUMARATE. [Suspect]
     Active Substance: QUETIAPINE FUMARATE
     Indication: BIPOLAR DISORDER
     Dosage: APOTEX, 200 MG, DAILY
     Route: 048
     Dates: start: 2007
  4. XANAX [Concomitant]
     Active Substance: ALPRAZOLAM
     Indication: GENERALISED ANXIETY DISORDER
     Route: 048
     Dates: start: 2013
  5. QUETIAPINE FUMARATE. [Suspect]
     Active Substance: QUETIAPINE FUMARATE
     Indication: BIPOLAR DISORDER
     Dosage: APOTEX, 150 MG, DAILY
     Route: 048
  6. QUETIAPINE FUMARATE. [Suspect]
     Active Substance: QUETIAPINE FUMARATE
     Indication: BIPOLAR DISORDER
     Dosage: APOTEX, 200 MG, UNKNOWN
     Route: 048
     Dates: start: 2014
  7. XANAX [Concomitant]
     Active Substance: ALPRAZOLAM
     Indication: SOCIAL PHOBIA
     Route: 048
     Dates: start: 2013

REACTIONS (14)
  - Mania [Unknown]
  - Nausea [Unknown]
  - Weight increased [Unknown]
  - Abnormal dreams [Unknown]
  - Psychiatric symptom [Unknown]
  - Pharyngeal disorder [Unknown]
  - Hallucination [Unknown]
  - Loss of consciousness [Unknown]
  - Gastric disorder [Unknown]
  - Muscle twitching [Unknown]
  - Sedation [Unknown]
  - Anxiety [Unknown]
  - Diarrhoea [Unknown]
  - Depression [Unknown]

NARRATIVE: CASE EVENT DATE: 2009
